FAERS Safety Report 10747678 (Version 2)
Quarter: 2015Q2

REPORT INFORMATION
  Report Type: Report from Study
  Country: US (occurrence: None)
  Receive Date: 20150120
  Receipt Date: 20150420
  Transmission Date: 20150821
  Serious: Yes (Other)
  Sender: FDA-Public Use
  Company Number: AEGR000988

PATIENT
  Age: 47 Year
  Sex: Female
  Weight: 90.2 kg

DRUGS (15)
  1. FLONASE [Concomitant]
     Active Substance: FLUTICASONE PROPIONATE
  2. JUXTAPID [Suspect]
     Active Substance: LOMITAPIDE MESYLATE
     Indication: TYPE IIA HYPERLIPIDAEMIA
     Route: 048
     Dates: start: 20141127, end: 201501
  3. ASPIRIN (ACETYLSALICYLIC ACID) [Concomitant]
     Active Substance: ASPIRIN
  4. IBUPROFEN. [Concomitant]
     Active Substance: IBUPROFEN
  5. VITAMIN E (TOCOPHERYL ACETATE) [Concomitant]
  6. VALTREX [Concomitant]
     Active Substance: VALACYCLOVIR HYDROCHLORIDE
  7. METOPROLOL (METOPROLOL TARTRATE) [Concomitant]
     Active Substance: METOPROLOL TARTRATE
  8. NITRO (GLYCERYL TRINITRATE) [Concomitant]
  9. PLAVIX (CLOPIDOGREL BISULFATE) [Concomitant]
  10. LISINOPRIL. [Concomitant]
     Active Substance: LISINOPRIL
  11. ULTRAM (TRAMADOL HYDORCHLORIDE) [Concomitant]
  12. ISOSORBIDE (ISOSORBIDE DINITRATE) [Concomitant]
  13. MULTIVITAMIN (VITAMINS NOS) [Concomitant]
     Active Substance: VITAMINS
  14. PROTONIX (PANTOPRAZOLE SODIUM SESQUITHYDRATE) [Concomitant]
  15. SIMVASTATIN. [Concomitant]
     Active Substance: SIMVASTATIN

REACTIONS (8)
  - Abdominal pain [None]
  - Dehydration [None]
  - Hypophagia [None]
  - Diarrhoea [None]
  - Pain [None]
  - Asthenia [None]
  - Fatigue [None]
  - Therapy cessation [None]

NARRATIVE: CASE EVENT DATE: 20141127
